FAERS Safety Report 4489335-4 (Version None)
Quarter: 2004Q4

REPORT INFORMATION
  Report Type: 
  Country: None (occurrence: None)
  Receive Date: 20041029
  Receipt Date: 20041004
  Transmission Date: 20050328
  Serious: Yes (Hospitalization, Disabling)
  Sender: FDA-Public Use
  Company Number: US-MERCK-0410USA00537

PATIENT
  Age: 56 Year
  Sex: Female
  Weight: 94 kg

DRUGS (4)
  1. VIOXX [Suspect]
     Route: 048
     Dates: end: 20040930
  2. VITAMINS (UNSPECIFIED) [Concomitant]
     Route: 065
  3. NEURONTIN [Concomitant]
     Route: 065
  4. ZESTRIL [Concomitant]
     Route: 065

REACTIONS (3)
  - BLOOD PRESSURE INCREASED [None]
  - CEREBRAL HAEMORRHAGE [None]
  - VISUAL FIELD DEFECT [None]
